FAERS Safety Report 7473463-5 (Version None)
Quarter: 2011Q2

REPORT INFORMATION
  Report Type: 
  Country: None (occurrence: None)
  Receive Date: 20110503
  Receipt Date: 20110425
  Transmission Date: 20111010
  Serious: Yes (Hospitalization)
  Sender: FDA-Public Use
  Company Number: UTC-006621

PATIENT
  Age: 43 Year
  Sex: Female

DRUGS (3)
  1. REMODULIN [Suspect]
     Dosage: INTRAVENOUS
     Route: 042
  2. ADCIRCA [Concomitant]
  3. REMODULIN [Suspect]
     Indication: COR PULMONALE CHRONIC
     Dosage: 43.2 UG/KG (0.03 UG/KG,1 IN 1 MIN),SUBCUTANEOUS
     Route: 058
     Dates: start: 20100929

REACTIONS (1)
  - DEVICE RELATED INFECTION [None]
